FAERS Safety Report 7887980-7 (Version None)
Quarter: 2011Q4

REPORT INFORMATION
  Report Type: 
  Country: None (occurrence: None)
  Receive Date: 20111103
  Receipt Date: 20111026
  Transmission Date: 20120403
  Serious: Yes (Other)
  Sender: FDA-Public Use
  Company Number: GB-ASTELLAS-2011EU007602

PATIENT
  Age: 50 Year
  Sex: Female
  Weight: 54.5 kg

DRUGS (12)
  1. ACETAMINOPHEN WITH PROPOXYPHENE HCL TAB [Concomitant]
     Dosage: 1 DF, PRN
     Route: 065
  2. SOLIFENACIN SUCCINATE [Concomitant]
     Dosage: 5 MG, UNKNOWN/D
     Route: 065
  3. MICRONOR [Concomitant]
     Dosage: 350 UG, UID/QD
     Route: 065
  4. RHINOLAST [Concomitant]
     Dosage: 140 UG, UNKNOWN/D
     Route: 055
  5. OMEPRAZOLE [Concomitant]
     Dosage: 20 MG, UID/QD
     Route: 065
  6. VISCOTEARS [Concomitant]
     Dosage: UNK
     Route: 065
  7. ACETAMINOPHEN AND CODEINE PHOSPHATE [Concomitant]
     Dosage: UNK
     Route: 065
  8. TEMAZEPAM [Concomitant]
     Dosage: 5 MG, UID/QD
     Route: 065
  9. VENTOLIN [Concomitant]
     Dosage: 100 UG, UNKNOWN/D
     Route: 065
  10. VESICARE [Suspect]
     Indication: HYPERTONIC BLADDER
     Dosage: 5 MG, UID/QD
     Route: 048
     Dates: start: 20101220, end: 20110310
  11. DIAZEPAM [Concomitant]
     Dosage: 2 MG, BID
     Route: 065
  12. ECHINACEA [Concomitant]
     Dosage: 15 DF, UNKNOWN/D
     Route: 065

REACTIONS (3)
  - ALOPECIA [None]
  - VISION BLURRED [None]
  - SKIN BURNING SENSATION [None]
